FAERS Safety Report 21033161 (Version 1)
Quarter: 2022Q3

REPORT INFORMATION
  Report Type: Spontaneous
  Country: FR (occurrence: FR)
  Receive Date: 20220701
  Receipt Date: 20220701
  Transmission Date: 20221027
  Serious: Yes (Hospitalization, Other)
  Sender: FDA-Public Use
  Company Number: None

PATIENT
  Age: 46 Year
  Sex: Male
  Weight: 65 kg

DRUGS (4)
  1. IFOSFAMIDE [Suspect]
     Active Substance: IFOSFAMIDE
     Indication: T-cell lymphoma
     Dosage: 5G/M?, INTRAVENOUS OTHERWISE NOT SPECIFIED
     Route: 042
     Dates: start: 20220503
  2. ETOPOSIDE [Suspect]
     Active Substance: ETOPOSIDE
     Indication: T-cell lymphoma
     Dosage: 100MG/M?, SOLUTION FOR INJECTION FOR INFUSION, INTRAVENOUS OTHERWSIE NOT SPECIFIED
     Route: 042
     Dates: start: 20220503
  3. ADCETRIS [Suspect]
     Active Substance: BRENTUXIMAB VEDOTIN
     Indication: T-cell lymphoma
     Dosage: 1.8MG/KG, INTRAVENOUS OTHERWISE NOT SPECIFIED
     Route: 042
     Dates: start: 20220503
  4. CARBOPLATIN [Suspect]
     Active Substance: CARBOPLATIN
     Indication: T-cell lymphoma
     Dosage: INTRAVENOUS OTHERWISE NOT SPECIFIED
     Route: 042
     Dates: start: 20220503

REACTIONS (2)
  - Papilloedema [Not Recovered/Not Resolved]
  - Visual acuity reduced [Not Recovered/Not Resolved]

NARRATIVE: CASE EVENT DATE: 20220612
